FAERS Safety Report 13842484 (Version 1)
Quarter: 2017Q3

REPORT INFORMATION
  Report Type: Spontaneous
  Country: US (occurrence: US)
  Receive Date: 20170807
  Receipt Date: 20170807
  Transmission Date: 20171127
  Serious: Yes (Other)
  Sender: FDA-Public Use
  Company Number: None

PATIENT
  Age: 30 Year
  Sex: Female
  Weight: 67.5 kg

DRUGS (4)
  1. ANTIHISTAMINE [Concomitant]
     Active Substance: ANTIHISTAMINES NOS
  2. ALLERGY RELIEF LORATADINE TABLETS [Concomitant]
  3. ALDACTONE [Suspect]
     Active Substance: SPIRONOLACTONE
     Indication: ACNE
     Dosage: ?          QUANTITY:120 TABLET(S);?
     Route: 048
     Dates: start: 20170629, end: 20170730
  4. USP [Concomitant]

REACTIONS (9)
  - Hypopnoea [None]
  - Fear [None]
  - Hyperventilation [None]
  - Paraesthesia [None]
  - Vision blurred [None]
  - Anxiety [None]
  - Therapy cessation [None]
  - Panic attack [None]
  - Hyperhidrosis [None]

NARRATIVE: CASE EVENT DATE: 20170721
